FAERS Safety Report 12209635 (Version 1)
Quarter: 2016Q1

REPORT INFORMATION
  Report Type: Spontaneous
  Country: GB (occurrence: GB)
  Receive Date: 20160325
  Receipt Date: 20160325
  Transmission Date: 20160526
  Serious: Yes (Death, Hospitalization)
  Sender: FDA-Public Use
  Company Number: GB-ROCHE-1730233

PATIENT
  Sex: Male

DRUGS (1)
  1. ESBRIET [Suspect]
     Active Substance: PIRFENIDONE
     Indication: PRODUCT USED FOR UNKNOWN INDICATION
     Route: 065
     Dates: start: 20150110

REACTIONS (29)
  - Nasopharyngitis [Unknown]
  - Hernia [Unknown]
  - Umbilical hernia [Unknown]
  - Gastrooesophageal reflux disease [Unknown]
  - Fatigue [Unknown]
  - Dry mouth [Unknown]
  - Somnolence [Unknown]
  - Malaise [Unknown]
  - Decreased appetite [Unknown]
  - Muscle spasms [Unknown]
  - Insomnia [Unknown]
  - Dysgeusia [Unknown]
  - Rash [Unknown]
  - Asthenia [Unknown]
  - Peripheral swelling [Unknown]
  - Abdominal distension [Unknown]
  - Nausea [Unknown]
  - Disorientation [Unknown]
  - Abdominal distension [Unknown]
  - Peripheral swelling [Unknown]
  - Catarrh [Unknown]
  - Cough [Unknown]
  - Hypotension [Unknown]
  - Pneumonia [Fatal]
  - Rhinorrhoea [Unknown]
  - Diarrhoea [Unknown]
  - Asthenia [Unknown]
  - Abdominal discomfort [Unknown]
  - Skin discolouration [Unknown]

NARRATIVE: CASE EVENT DATE: 20151003
